FAERS Safety Report 7798919-7 (Version None)
Quarter: 2011Q4

REPORT INFORMATION
  Report Type: 
  Country: None (occurrence: None)
  Receive Date: 20111006
  Receipt Date: 20111004
  Transmission Date: 20120403
  Serious: No
  Sender: FDA-Public Use
  Company Number: US-PFIZER INC-2011237738

PATIENT
  Sex: Male
  Weight: 83.9 kg

DRUGS (4)
  1. TYLENOL-500 [Concomitant]
     Indication: ARTHRITIS
     Dosage: 1300 MG, AS NEEDED
     Route: 048
  2. DYAZIDE [Concomitant]
     Indication: BLOOD PRESSURE ABNORMAL
     Dosage: 37.5 MG, DAILY
  3. TERAZOSIN HYDROCHLORIDE [Concomitant]
     Dosage: 2 MG, DAILY
  4. LIPITOR [Suspect]
     Indication: BLOOD CHOLESTEROL ABNORMAL
     Dosage: 10 MG, DAILY
     Route: 048

REACTIONS (3)
  - FEELING ABNORMAL [None]
  - MYALGIA [None]
  - PARAESTHESIA [None]
